FAERS Safety Report 5065456-2 (Version None)
Quarter: 2006Q3

REPORT INFORMATION
  Report Type: 
  Country: None (occurrence: None)
  Receive Date: 20060731
  Receipt Date: 20060724
  Transmission Date: 20061208
  Serious: Yes (Other)
  Sender: FDA-Public Use
  Company Number: PHBS2006BR11212

PATIENT
  Age: 80 Year
  Sex: Female

DRUGS (3)
  1. DIOVAN [Suspect]
  2. CARBOLITIUM [Suspect]
  3. LIPITOR [Suspect]

REACTIONS (3)
  - DEPRESSION [None]
  - DRUG INTERACTION [None]
  - TREMOR [None]
